FAERS Safety Report 6589253-1 (Version None)
Quarter: 2010Q1

REPORT INFORMATION
  Report Type: 
  Country: None (occurrence: None)
  Receive Date: 20100212
  Receipt Date: 20100129
  Transmission Date: 20100710
  Serious: Yes (Hospitalization)
  Sender: FDA-Public Use
  Company Number: 230002M10FRA

PATIENT
  Age: 27 Year
  Sex: Female

DRUGS (6)
  1. REBIF [Suspect]
     Indication: RELAPSING-REMITTING MULTIPLE SCLEROSIS
     Dosage: SUBCUTANEOUS
     Route: 058
     Dates: start: 20090101, end: 20090801
  2. PROZAC [Concomitant]
  3. LYRICA [Concomitant]
  4. CYMBALTA [Concomitant]
  5. MEDROL [Concomitant]
  6. XATRAL (ALFUZOSIN) [Concomitant]

REACTIONS (4)
  - BICYTOPENIA [None]
  - CONDITION AGGRAVATED [None]
  - DYSURIA [None]
  - MULTIPLE SCLEROSIS RELAPSE [None]
